FAERS Safety Report 24431832 (Version 1)
Quarter: 2024Q4

REPORT INFORMATION
  Report Type: Spontaneous
  Country: GB (occurrence: GB)
  Receive Date: 20241014
  Receipt Date: 20241014
  Transmission Date: 20250115
  Serious: Yes (Hospitalization, Other)
  Sender: AUROBINDO
  Company Number: GB-CELGENE-GBR-20211207752

PATIENT
  Age: 72 Year
  Sex: Male
  Weight: 89 kg

DRUGS (19)
  1. AZACITIDINE [Suspect]
     Active Substance: AZACITIDINE
     Indication: Myelodysplastic syndrome
     Dosage: 75 MILLIGRAM/SQ. METER, FOUR TIMES/DAY (18.75 MILLIGRAM/SQ. METER)
     Route: 058
     Dates: start: 20211213, end: 20211213
  2. AZACITIDINE [Suspect]
     Active Substance: AZACITIDINE
     Dosage: 75 MILLIGRAM/SQ. METER
     Route: 058
     Dates: start: 20211221
  3. PLACEBO [Suspect]
     Active Substance: PLACEBO
     Indication: Myelodysplastic syndrome
     Dosage: UNK
     Route: 048
     Dates: start: 20211213, end: 20211214
  4. PLACEBO [Suspect]
     Active Substance: PLACEBO
     Dosage: UNK
     Route: 048
     Dates: start: 20211221
  5. ACETAMINOPHEN [Concomitant]
     Active Substance: ACETAMINOPHEN
     Indication: Pain
     Dosage: 1000 MILLIGRAM, ONCE A DAY
     Route: 048
     Dates: start: 20190925
  6. DIHYDROCODEINE [Concomitant]
     Active Substance: DIHYDROCODEINE
     Indication: Pain
     Dosage: 60 MILLIGRAM, ONCE A DAY
     Route: 048
     Dates: start: 20190925
  7. ASPIRIN [Concomitant]
     Active Substance: ASPIRIN
     Indication: Cardiovascular insufficiency
     Dosage: 75 MILLIGRAM, ONCE A DAY
     Route: 048
     Dates: start: 20210925
  8. FOLIC ACID [Concomitant]
     Active Substance: FOLIC ACID
     Indication: Vitamin supplementation
     Dosage: 5 MILLIGRAM, ONCE A DAY
     Route: 048
     Dates: start: 20210925
  9. AMLODIPINE [Suspect]
     Active Substance: AMLODIPINE BESYLATE
     Indication: Hypertension
     Dosage: 10 MILLIGRAM, ONCE A DAY
     Route: 048
     Dates: start: 20210925
  10. PRAVASTATIN [Concomitant]
     Active Substance: PRAVASTATIN
     Indication: Hypertension
     Dosage: 20 MILLIGRAM, ONCE A DAY
     Route: 048
     Dates: start: 20210925
  11. ISOSORBIDE MONONITRATE [Concomitant]
     Active Substance: ISOSORBIDE MONONITRATE
     Indication: Angina pectoris
     Dosage: 60 MILLIGRAM, ONCE A DAY
     Route: 048
     Dates: start: 20210925
  12. TAMSULOSIN [Concomitant]
     Active Substance: TAMSULOSIN
     Indication: Fluid retention
     Dosage: 400 MICROGRAM, ONCE A DAY
     Route: 048
     Dates: start: 20210925
  13. OMEPRAZOLE [Concomitant]
     Active Substance: OMEPRAZOLE
     Indication: Gastrooesophageal reflux disease
     Dosage: 20 MICROGRAM, ONCE A DAY
     Route: 048
     Dates: start: 20210925
  14. ONDANSETRON [Concomitant]
     Active Substance: ONDANSETRON
     Indication: Nausea
     Dosage: 8 MILLIGRAM, ONCE A DAY
     Route: 048
     Dates: start: 20211213
  15. DOMPERIDONE [Concomitant]
     Active Substance: DOMPERIDONE
     Indication: Nausea
     Dosage: 10 MILLIGRAM, AS NECESSARY
     Route: 048
     Dates: start: 20211213
  16. CIPROFLOXACIN [Concomitant]
     Active Substance: CIPROFLOXACIN
     Indication: Infection
     Dosage: 500 MILLIGRAM, ONCE A DAY (1000 MILLIGRAM)
     Route: 048
     Dates: start: 20211213
  17. POSACONAZOLE [Concomitant]
     Active Substance: POSACONAZOLE
     Indication: Infection
     Dosage: 300 MILLIGRAM, ONCE A DAY
     Route: 048
     Dates: start: 20211213
  18. ALLOPURINOL [Concomitant]
     Active Substance: ALLOPURINOL
     Indication: Prophylaxis
     Dosage: 300 MILLIGRAM, ONCE A DAY
     Route: 048
     Dates: start: 20211213, end: 20211217
  19. SODIUM CHLORIDE [Concomitant]
     Active Substance: SODIUM CHLORIDE
     Indication: Oral infection
     Dosage: 10 MILLILITER (40 MILLILITER, 4 IN 1 DAY)
     Route: 048
     Dates: start: 20211213

REACTIONS (1)
  - Pneumonia [Recovered/Resolved]

NARRATIVE: CASE EVENT DATE: 20211214
